FAERS Safety Report 9788685 (Version 2)
Quarter: 2014Q1

REPORT INFORMATION
  Report Type: Report from Study
  Country: JP (occurrence: JP)
  Receive Date: 20131230
  Receipt Date: 20140306
  Transmission Date: 20141002
  Serious: Yes (Death, Hospitalization, Other)
  Sender: FDA-Public Use
  Company Number: JP-TAKEDA-2013TJP004287

PATIENT
  Age: 71 Year
  Sex: Male

DRUGS (15)
  1. LANSOPRAZOLE [Suspect]
     Indication: PROPHYLAXIS AGAINST GASTROINTESTINAL ULCER
     Dosage: 15 MG, QD
     Route: 048
     Dates: start: 20120629, end: 20130329
  2. CELECOX [Concomitant]
     Indication: OSTEOARTHRITIS
     Dosage: 200 MG, 1 DAYS
     Route: 048
  3. PROSTAL                            /00093602/ [Concomitant]
     Dosage: 50 MG, 1 DAYS
     Route: 048
  4. HARNAL D [Concomitant]
     Dosage: 0.2 MG,1 DAYS
     Route: 048
  5. BROVARIN [Concomitant]
     Indication: INSOMNIA
     Dosage: 0.5 G, 1 DAYS
     Route: 048
     Dates: end: 20121101
  6. HALCION [Concomitant]
     Dosage: 0.25 MG, 1 DAYS
     Route: 048
  7. CLARITH [Concomitant]
     Dosage: 400 MG, 1 DAYS
     Route: 048
     Dates: start: 20120706
  8. CLARITH [Concomitant]
     Dosage: 400 MG, 1 DAYS
     Route: 048
     Dates: start: 20120824
  9. DEPAS [Concomitant]
     Dosage: 0.5 MG, PRN
     Route: 048
     Dates: start: 20120706
  10. ZYLORIC [Concomitant]
     Indication: HYPERURICAEMIA
     Dosage: 200 MG, 1 DAYS
     Route: 048
     Dates: start: 20120720
  11. LENDORMIN [Concomitant]
     Indication: INSOMNIA
     Dosage: 0.25 MG, 1 DAYS
     Route: 048
     Dates: start: 20121102
  12. MUCOSOLVAN [Concomitant]
     Dosage: 45 MG, 1 DAYS
     Route: 048
     Dates: start: 20121019
  13. PL [Concomitant]
     Dosage: 3 G, 1 DAYS
     Route: 048
     Dates: start: 20121207
  14. MICARDIS [Concomitant]
     Indication: HYPERTENSION
     Dosage: 40 MG, 1 DAYS
     Route: 048
     Dates: start: 20130208
  15. MAINTATE [Concomitant]
     Indication: HYPERTENSION
     Dosage: 2.5 MG, 1 DAYS
     Route: 048
     Dates: start: 20130208

REACTIONS (2)
  - Sepsis [Fatal]
  - Atrial fibrillation [Recovering/Resolving]
